FAERS Safety Report 7509006-7 (Version None)
Quarter: 2011Q2

REPORT INFORMATION
  Report Type: 
  Country: None (occurrence: None)
  Receive Date: 20110527
  Receipt Date: 20110513
  Transmission Date: 20111010
  Serious: Yes (Hospitalization, Other)
  Sender: FDA-Public Use
  Company Number: US-SANOFI-AVENTIS-A03200904074

PATIENT
  Age: 74 Year
  Sex: Female
  Weight: 61.2 kg

DRUGS (6)
  1. CALCIUM CARBONATE [Concomitant]
  2. METHOTREXATE [Concomitant]
  3. FOLIC ACID [Concomitant]
  4. HYDROXYCHLOROQUINE SULFATE [Suspect]
     Indication: RHEUMATOID ARTHRITIS
     Dosage: UNIT DOSE: 200 MG
     Route: 048
     Dates: start: 20080111, end: 20090818
  5. HYDROXYCHLOROQUINE SULFATE [Suspect]
     Route: 048
     Dates: start: 20100501, end: 20110508
  6. VITAMIN D [Concomitant]

REACTIONS (5)
  - ANAEMIA [None]
  - DIARRHOEA [None]
  - RASH PRURITIC [None]
  - LOSS OF CONSCIOUSNESS [None]
  - DIZZINESS [None]
